FAERS Safety Report 8074892-1 (Version None)
Quarter: 2012Q1

REPORT INFORMATION
  Report Type: 
  Country: None (occurrence: None)
  Receive Date: 20120126
  Receipt Date: 20120117
  Transmission Date: 20120608
  Serious: Yes (Other)
  Sender: FDA-Public Use
  Company Number: JP-ASTRAZENECA-2011SE62480

PATIENT
  Age: 72 Year
  Sex: Female

DRUGS (11)
  1. HUSTAZOL [Concomitant]
     Indication: BRONCHOPNEUMONIA
     Route: 048
     Dates: start: 20110401, end: 20110407
  2. PL [Concomitant]
     Indication: BRONCHOPNEUMONIA
     Route: 048
     Dates: start: 20110330, end: 20110406
  3. MUCOSOLVAN [Concomitant]
     Indication: BRONCHOPNEUMONIA
     Route: 048
     Dates: start: 20110330, end: 20110406
  4. AMOXICILLIN [Concomitant]
     Indication: BRONCHOPNEUMONIA
     Route: 048
     Dates: start: 20110330, end: 20110401
  5. SYMBICORT [Suspect]
     Dosage: 1 DF TWO TIMES A DAY
     Route: 055
     Dates: start: 20110801
  6. ARDEPHYLLIN [Concomitant]
     Indication: ASTHMA
     Route: 048
  7. LEVOFLOXACIN [Concomitant]
     Indication: BRONCHOPNEUMONIA
     Route: 048
     Dates: start: 20110401, end: 20110407
  8. SYMBICORT [Suspect]
     Indication: ASTHMA
     Dosage: 4 DF TWO TIMES A DAY
     Route: 055
     Dates: start: 20100913, end: 20110103
  9. ONON [Concomitant]
     Indication: ASTHMA
     Route: 048
  10. MUCOSTA [Concomitant]
     Indication: BRONCHOPNEUMONIA
     Route: 048
     Dates: start: 20110401, end: 20110407
  11. SYMBICORT [Suspect]
     Dosage: 2 DF TWO TIMES A DAY
     Route: 055
     Dates: start: 20110104, end: 20110731

REACTIONS (1)
  - BRONCHOPNEUMONIA [None]
